FAERS Safety Report 6398476-6 (Version None)
Quarter: 2009Q4

REPORT INFORMATION
  Report Type: 
  Country: None (occurrence: None)
  Receive Date: 20091013
  Receipt Date: 20091009
  Transmission Date: 20100525
  Serious: Yes (Life-Threatening, Hospitalization)
  Sender: FDA-Public Use
  Company Number: A0811428A

PATIENT
  Sex: Male
  Weight: 66 kg

DRUGS (3)
  1. SERETIDE [Suspect]
     Dosage: 1PUFF TWICE PER DAY
     Route: 055
     Dates: start: 20070101
  2. SPIRIVA [Concomitant]
     Dosage: 1PUFF TWICE PER DAY
     Route: 055
     Dates: start: 20090701
  3. ENALAPRIL MALEATE [Concomitant]
     Dosage: 1TAB TWICE PER DAY
     Route: 048
     Dates: start: 20090701

REACTIONS (6)
  - CEREBRAL ARTERY THROMBOSIS [None]
  - CLAVICLE FRACTURE [None]
  - HYPOACUSIS [None]
  - LOWER LIMB FRACTURE [None]
  - RIB FRACTURE [None]
  - ROAD TRAFFIC ACCIDENT [None]
